FAERS Safety Report 23847699 (Version 1)
Quarter: 2024Q2

REPORT INFORMATION
  Report Type: Spontaneous
  Country: US (occurrence: None)
  Receive Date: 20240510
  Receipt Date: 20240510
  Transmission Date: 20240715
  Serious: Yes (Hospitalization)
  Sender: FDA-Public Use
  Company Number: None

PATIENT
  Age: 71 Year
  Sex: Male
  Weight: 95.85 kg

DRUGS (1)
  1. ABIRATERONE ACETATE [Suspect]
     Active Substance: ABIRATERONE ACETATE
     Indication: Prostate cancer
     Dosage: FREQUENCY : DAILY;?
     Route: 048
     Dates: start: 20221129

REACTIONS (16)
  - Muscular weakness [None]
  - Dysstasia [None]
  - Arthropathy [None]
  - Parkinsonism [None]
  - Normal pressure hydrocephalus [None]
  - Syncope [None]
  - Injury [None]
  - Fall [None]
  - Haemorrhage intracranial [None]
  - Spinal cord injury cervical [None]
  - Physical deconditioning [None]
  - Anaemia [None]
  - Acute coronary syndrome [None]
  - Pulmonary embolism [None]
  - Arrhythmia [None]
  - Cerebrovascular accident [None]

NARRATIVE: CASE EVENT DATE: 20240509
